FAERS Safety Report 7073655-3 (Version None)
Quarter: 2010Q4

REPORT INFORMATION
  Report Type: 
  Country: None (occurrence: None)
  Receive Date: 20101029
  Receipt Date: 20100726
  Transmission Date: 20110411
  Serious: No
  Sender: FDA-Public Use
  Company Number: A0872352A

PATIENT
  Sex: Female

DRUGS (10)
  1. ADVAIR DISKUS 100/50 [Suspect]
     Indication: ASTHMA
     Dosage: 2PUFF TWICE PER DAY
     Route: 055
  2. LEVOTHYROXINE [Concomitant]
  3. PROTEX [Concomitant]
  4. SIMVASTATIN [Concomitant]
  5. UNKNOWN DRUG [Concomitant]
  6. TOPROL-XL [Concomitant]
  7. KLOR-CON [Concomitant]
  8. ACTONEL [Concomitant]
  9. CALCIUM CITRATE [Concomitant]
  10. ASPIRIN [Concomitant]

REACTIONS (3)
  - COUGH [None]
  - DYSPHONIA [None]
  - INCREASED UPPER AIRWAY SECRETION [None]
